FAERS Safety Report 17870257 (Version 1)
Quarter: 2020Q2

REPORT INFORMATION
  Report Type: Spontaneous
  Country: US (occurrence: US)
  Receive Date: 20200605
  Receipt Date: 20200605
  Transmission Date: 20200714
  Serious: Yes (Disabling)
  Sender: FDA-Public Use
  Company Number: None

PATIENT
  Age: 72 Year
  Sex: Female

DRUGS (1)
  1. PROLIA [Suspect]
     Active Substance: DENOSUMAB
     Indication: OSTEOPOROSIS

REACTIONS (6)
  - Arthralgia [None]
  - Gait disturbance [None]
  - Quality of life decreased [None]
  - Back pain [None]
  - Mastication disorder [None]
  - Pain in jaw [None]

NARRATIVE: CASE EVENT DATE: 20190606
